FAERS Safety Report 23895627 (Version 1)
Quarter: 2024Q2

REPORT INFORMATION
  Report Type: Spontaneous
  Country: US (occurrence: US)
  Receive Date: 20240524
  Receipt Date: 20240524
  Transmission Date: 20240716
  Serious: No
  Sender: FDA-Public Use
  Company Number: US-Accord-407284

PATIENT
  Age: 43 Year
  Sex: Male

DRUGS (4)
  1. QUETIAPINE FUMARATE [Suspect]
     Active Substance: QUETIAPINE FUMARATE
     Indication: Sleep disorder
     Dosage: 1.5 TABLET EACH EVENING BY MOUTH?FOR AT LEAST FIVE YEARS?EXTENDED RELEASE
  2. LAMOTRIGINE [Concomitant]
     Active Substance: LAMOTRIGINE
     Dosage: 2 IN MORNING?FOR AT LEAST FIVE YEARS
  3. OMEPRAZOLE [Concomitant]
     Active Substance: DONEPEZIL HYDROCHLORIDE\OMEPRAZOLE\OMEPRAZOLE MAGNESIUM
     Dosage: 1 IN MORNING 1 AT NIGHT?FOR AT LEAST FIVE YEARS
  4. QUETIAPINE FUMARATE [Suspect]
     Active Substance: QUETIAPINE FUMARATE
     Indication: Sleep disorder
     Dosage: 1 AT NIGHT

REACTIONS (16)
  - Headache [Unknown]
  - Insomnia [Unknown]
  - Pruritus [Unknown]
  - Dehydration [Unknown]
  - Thirst [Unknown]
  - Off label use [Unknown]
  - Weight increased [Unknown]
  - Night sweats [Unknown]
  - Dry mouth [Unknown]
  - Flatulence [Unknown]
  - Dizziness [Unknown]
  - Mobility decreased [Unknown]
  - Mental disorder [Unknown]
  - Product dispensing error [Unknown]
  - Abdominal distension [Unknown]
  - Hypersensitivity [Unknown]
